FAERS Safety Report 4502147-8 (Version None)
Quarter: 2004Q4

REPORT INFORMATION
  Report Type: 
  Country: None (occurrence: None)
  Receive Date: 20041109
  Receipt Date: 20041021
  Transmission Date: 20050328
  Serious: Yes (Hospitalization)
  Sender: FDA-Public Use
  Company Number: JP_041004921

PATIENT
  Age: 70 Year
  Sex: Male

DRUGS (1)
  1. GEMZAR [Suspect]
     Indication: PANCREATIC CARCINOMA METASTATIC
     Dosage: 800 MG/1 WEEK
     Dates: start: 20030729

REACTIONS (7)
  - ASCITES INFECTION [None]
  - DECREASED APPETITE [None]
  - EFFUSION [None]
  - ESCHERICHIA INFECTION [None]
  - KLEBSIELLA INFECTION [None]
  - LUNG INJURY [None]
  - PERITONITIS BACTERIAL [None]
